FAERS Safety Report 5412125-2 (Version None)
Quarter: 2007Q3

REPORT INFORMATION
  Report Type: 
  Country: None (occurrence: None)
  Receive Date: 20070713
  Receipt Date: 20070329
  Transmission Date: 20080115
  Serious: No
  Sender: FDA-Public Use
  Company Number: 2007SP001157

PATIENT
  Age: 86 Year
  Sex: Male

DRUGS (14)
  1. LUNESTA [Suspect]
     Indication: INSOMNIA
     Dosage: 2 MG;HS;ORAL 2 MG;HS;ORAL 2 MG;HS;ORAL
     Route: 048
     Dates: start: 20060601, end: 20070201
  2. LUNESTA [Suspect]
     Indication: INSOMNIA
     Dosage: 2 MG;HS;ORAL 2 MG;HS;ORAL 2 MG;HS;ORAL
     Route: 048
     Dates: start: 20070201, end: 20070320
  3. LUNESTA [Suspect]
     Indication: INSOMNIA
     Dosage: 2 MG;HS;ORAL 2 MG;HS;ORAL 2 MG;HS;ORAL
     Route: 048
     Dates: start: 20070324, end: 20070328
  4. TOPIRAMATE [Suspect]
     Dosage: 100 MG; ORAL
     Route: 048
     Dates: start: 20070320, end: 20070321
  5. ATENOLOL [Concomitant]
  6. FELODIPINE [Concomitant]
  7. TRAMADOL HCL [Concomitant]
  8. POTASSIUM CHLORIDE [Concomitant]
  9. VITAMIN B [Concomitant]
  10. ASPIRIN [Concomitant]
  11. CALCIUM [Concomitant]
  12. GLUCOSAMINE W/CHONDROITIN [Concomitant]
  13. MILK OF MAGNESIA [Concomitant]
  14. PREDNISONE TAB [Concomitant]

REACTIONS (8)
  - APHASIA [None]
  - ARTHRALGIA [None]
  - CONFUSIONAL STATE [None]
  - HERNIA [None]
  - INSOMNIA [None]
  - MEDICATION ERROR [None]
  - PRURITUS [None]
  - SOMNOLENCE [None]
